FAERS Safety Report 4514776-6 (Version None)
Quarter: 2004Q4

REPORT INFORMATION
  Report Type: 
  Country: None (occurrence: None)
  Receive Date: 20041124
  Receipt Date: 20041124
  Transmission Date: 20050328
  Serious: Yes (Hospitalization)
  Sender: FDA-Public Use
  Company Number: None

PATIENT
  Age: 68 Year
  Sex: Male
  Weight: 111.95 kg

DRUGS (2)
  1. FENTANYL [Suspect]
     Dosage: 100 MCG  1 DOSE INTRAVENOUS
     Route: 042
     Dates: start: 20040706, end: 20040706
  2. VERSED [Suspect]
     Dosage: 2 MG  1 DOSE INTRAVENOUS
     Route: 042

REACTIONS (4)
  - APNOEA [None]
  - CARDIO-RESPIRATORY ARREST [None]
  - COMA [None]
  - LOSS OF CONSCIOUSNESS [None]
